FAERS Safety Report 9686632 (Version 2)
Quarter: 2013Q4

REPORT INFORMATION
  Report Type: Spontaneous
  Country: JP (occurrence: JP)
  Receive Date: 20131113
  Receipt Date: 20131203
  Transmission Date: 20140711
  Serious: No
  Sender: FDA-Public Use
  Company Number: JP-GLAXOSMITHKLINE-B0942166A

PATIENT
  Age: 87 Year
  Sex: Male

DRUGS (4)
  1. REVOLADE [Suspect]
     Indication: THROMBOCYTOPENIA
     Dosage: 12.5MG THREE TIMES PER DAY
     Route: 048
     Dates: end: 20131107
  2. PREDONINE [Concomitant]
     Route: 048
  3. PLAVIX [Concomitant]
     Indication: ISCHAEMIC HEART DISEASE PROPHYLAXIS
     Dosage: 75MG PER DAY
     Route: 048
     Dates: start: 20131029
  4. BAYASPIRIN [Concomitant]
     Indication: ISCHAEMIC HEART DISEASE PROPHYLAXIS
     Dosage: 100MG PER DAY
     Route: 065
     Dates: start: 20131029

REACTIONS (2)
  - White blood cell disorder [Unknown]
  - White blood cell count increased [Recovered/Resolved]
